FAERS Safety Report 24913175 (Version 1)
Quarter: 2025Q1

REPORT INFORMATION
  Report Type: Report from Study
  Country: CA (occurrence: CA)
  Receive Date: 20250201
  Receipt Date: 20250201
  Transmission Date: 20250408
  Serious: Yes (Hospitalization)
  Sender: AMGEN
  Company Number: CA-BEH-2025193389

PATIENT
  Age: 68 Year
  Sex: Male

DRUGS (2)
  1. AVACOPAN [Suspect]
     Active Substance: AVACOPAN
     Indication: Anti-neutrophil cytoplasmic antibody positive vasculitis
     Dosage: 30 MG, BID
     Route: 048
     Dates: start: 20240621, end: 202410
  2. AVACOPAN [Suspect]
     Active Substance: AVACOPAN
     Route: 065
     Dates: start: 202411

REACTIONS (2)
  - Malaise [Unknown]
  - Liver disorder [Unknown]

NARRATIVE: CASE EVENT DATE: 20241001
